FAERS Safety Report 8520502-6 (Version None)
Quarter: 2012Q3

REPORT INFORMATION
  Report Type: 
  Country: None (occurrence: None)
  Receive Date: 20120719
  Receipt Date: 20071026
  Transmission Date: 20120928
  Serious: Yes (Death)
  Sender: FDA-Public Use
  Company Number: CO-PFIZER INC-2012170982

PATIENT
  Age: 74 Year
  Sex: Female

DRUGS (6)
  1. LIPITOR [Suspect]
     Dosage: 10 MG, ONCE DAILY
     Route: 048
  2. ACETYLSALICYLIC ACID [Concomitant]
     Dosage: 100 MG, ONCE DAILY
     Route: 048
  3. METOPROLOL TARTRATE [Concomitant]
     Dosage: 50 MG, TWICE DAILY
     Route: 048
  4. OLMESARTAN MEDOXOMIL [Suspect]
     Dosage: 20 MG, ONCE DAILY
     Route: 048
  5. AMIODARONE [Concomitant]
     Dosage: 200 MG, ONCE DAILY
     Route: 048
  6. FUROSEMIDE [Concomitant]
     Dosage: 40 MG, ONCE DAILY
     Route: 048

REACTIONS (2)
  - DEATH [None]
  - MUSCULOSKELETAL PAIN [None]
